FAERS Safety Report 6638681-4 (Version None)
Quarter: 2010Q1

REPORT INFORMATION
  Report Type: 
  Country: None (occurrence: None)
  Receive Date: 20100317
  Receipt Date: 20100308
  Transmission Date: 20100710
  Serious: Yes (Hospitalization)
  Sender: FDA-Public Use
  Company Number: JP-ROCHE-645664

PATIENT
  Sex: Female
  Weight: 75 kg

DRUGS (32)
  1. TOCILIZUMAB [Suspect]
     Indication: RHEUMATOID ARTHRITIS
     Route: 041
     Dates: start: 20090706, end: 20090706
  2. TOCILIZUMAB [Suspect]
     Route: 041
     Dates: start: 20090811, end: 20090811
  3. TOCILIZUMAB [Suspect]
     Route: 041
     Dates: start: 20090908, end: 20090908
  4. TOCILIZUMAB [Suspect]
     Route: 041
     Dates: start: 20091005, end: 20091005
  5. TOCILIZUMAB [Suspect]
     Route: 041
     Dates: start: 20091030, end: 20091030
  6. TOCILIZUMAB [Suspect]
     Route: 041
     Dates: start: 20091124, end: 20091124
  7. TOCILIZUMAB [Suspect]
     Route: 041
     Dates: start: 20091222
  8. BUFFERIN [Suspect]
     Indication: ANGINA PECTORIS
     Route: 048
  9. LOXONIN [Suspect]
     Indication: RHEUMATOID ARTHRITIS
     Dosage: DOSE FORM : PERORAL AGENT.
     Route: 048
  10. LANSOPRAZOLE [Suspect]
     Indication: REFLUX OESOPHAGITIS
     Route: 048
  11. PREDNISOLONE [Suspect]
     Indication: RHEUMATOID ARTHRITIS
     Dosage: DOSE FORM : PERORAL AGENT.
     Route: 048
     Dates: end: 20090907
  12. PREDNISOLONE [Suspect]
     Dosage: FORM: PERORAL AGENT.
     Route: 048
     Dates: start: 20090908, end: 20091004
  13. PREDNISOLONE [Suspect]
     Dosage: FORM: PERORAL AGENT.
     Route: 048
     Dates: start: 20091005, end: 20091029
  14. PREDNISOLONE [Suspect]
     Dosage: FORM: PERORAL AGENT.
     Route: 048
     Dates: start: 20091030, end: 20091123
  15. PREDNISOLONE [Suspect]
     Route: 048
     Dates: start: 20091124
  16. PROGRAFT [Concomitant]
     Route: 048
  17. BREDININ [Concomitant]
     Route: 048
  18. ISCOTIN [Concomitant]
     Route: 048
  19. CALONAL [Concomitant]
     Dosage: FORM: PERORAL AGENT.
     Route: 048
  20. CYTOTEC [Concomitant]
     Route: 048
  21. HOCHU-EKKI-TO [Concomitant]
     Dosage: FORM: PERORAL AGENT.
     Route: 048
  22. NEUROTROPIN [Concomitant]
     Route: 048
  23. FOSAMAX [Concomitant]
     Dosage: DRUG NAME REPORTED AS FOSAMAC 35 MG
     Route: 048
  24. PYDOXAL [Concomitant]
     Route: 048
  25. URSO 250 [Concomitant]
     Dosage: FORM: PERORAL AGENT.
     Route: 048
  26. GANATON [Concomitant]
     Route: 048
  27. CONIEL [Concomitant]
     Route: 048
  28. MOHRUS [Concomitant]
     Dosage: DOSE FORM TAPE
     Route: 061
  29. GABAPEN [Concomitant]
     Route: 048
  30. CLONAZEPAM [Concomitant]
     Route: 048
  31. TOLEDOMIN [Concomitant]
     Route: 048
  32. RESLIN [Concomitant]
     Route: 048

REACTIONS (2)
  - INFUSION RELATED REACTION [None]
  - MELAENA [None]
